FAERS Safety Report 22387935 (Version 1)
Quarter: 2023Q2

REPORT INFORMATION
  Report Type: Spontaneous
  Country: US (occurrence: US)
  Receive Date: 20230531
  Receipt Date: 20230531
  Transmission Date: 20230722
  Serious: Yes (Other)
  Sender: FDA-Public Use
  Company Number: US-STRIDES ARCOLAB LIMITED-2023SP004891

PATIENT
  Age: 72 Year
  Sex: Male

DRUGS (11)
  1. DOXORUBICIN [Suspect]
     Active Substance: DOXORUBICIN
     Indication: Angioimmunoblastic T-cell lymphoma
     Dosage: UNK, AS A PART OF A+CHP REGIMEN, COMPLETED 6 CYCLES OF THERAPY
     Route: 065
  2. PREDNISOLONE [Suspect]
     Active Substance: PREDNISOLONE
     Indication: Angioimmunoblastic T-cell lymphoma
     Dosage: UNK, AS A PART OF A+CHP REGIMEN, COMPLETED 6 CYCLES OF THERAPY
     Route: 065
  3. PREDNISOLONE [Suspect]
     Active Substance: PREDNISOLONE
     Dosage: UNK, CONTINUED PREDNISOLONE TAPER
     Route: 065
  4. ETOPOSIDE [Suspect]
     Active Substance: ETOPOSIDE
     Indication: Angioimmunoblastic T-cell lymphoma
     Dosage: UNK, AS A PART OF ICE REGIMEN, COMPLETED 2 CYCLES OF THERAPY
     Route: 065
  5. CARBOPLATIN [Suspect]
     Active Substance: CARBOPLATIN
     Indication: Angioimmunoblastic T-cell lymphoma
     Dosage: UNK, AS A PART OF ICE REGIMEN, COMPLETED 2 CYCLES OF THERAPY
     Route: 065
  6. BRENTUXIMAB VEDOTIN [Suspect]
     Active Substance: BRENTUXIMAB VEDOTIN
     Indication: Angioimmunoblastic T-cell lymphoma
     Dosage: UNK, AS A PART OF A+CHP REGIMEN, COMPLETED 6 CYCLES OF THERAPY
     Route: 065
  7. CYCLOPHOSPHAMIDE [Suspect]
     Active Substance: CYCLOPHOSPHAMIDE
     Indication: Angioimmunoblastic T-cell lymphoma
     Dosage: UNK, AS A PART OF A+CHP REGIMEN, COMPLETED 6 CYCLES OF THERAPY
     Route: 065
  8. IFOSFAMIDE [Suspect]
     Active Substance: IFOSFAMIDE
     Indication: Angioimmunoblastic T-cell lymphoma
     Dosage: UNK, AS A PART OF ICE REGIMEN, COMPLETED 2 CYCLES OF THERAPY
     Route: 065
  9. BETAMETHASONE [Concomitant]
     Active Substance: BETAMETHASONE
     Indication: Pruritus
     Dosage: UNK
     Route: 061
  10. CLOBETASOL [Concomitant]
     Active Substance: CLOBETASOL
     Indication: Dermatitis psoriasiform
     Dosage: UNK
     Route: 065
  11. HYDROCORTISONE [Concomitant]
     Active Substance: HYDROCORTISONE
     Indication: Dermatitis psoriasiform
     Dosage: UNK
     Route: 065

REACTIONS (2)
  - Drug ineffective [Unknown]
  - Off label use [Unknown]
